FAERS Safety Report 5224888-X (Version None)
Quarter: 2007Q1

REPORT INFORMATION
  Report Type: 
  Country: None (occurrence: None)
  Receive Date: 20070131
  Receipt Date: 20070119
  Transmission Date: 20070707
  Serious: Yes (Hospitalization, Disabling)
  Sender: FDA-Public Use
  Company Number: PL-AMGEN-UK205330

PATIENT
  Sex: Male

DRUGS (13)
  1. PANITUMUMAB [Suspect]
     Indication: COLORECTAL CANCER
     Route: 042
     Dates: start: 20061108
  2. FLUOROURACIL [Suspect]
     Route: 065
     Dates: start: 20050223
  3. OXALIPLATIN [Suspect]
     Route: 041
     Dates: start: 20061108
  4. LEUCOVORIN CALCIUM [Suspect]
     Route: 065
     Dates: start: 20050223
  5. TRAMADOL HCL [Concomitant]
     Route: 048
  6. MEGESTROL ACETATE [Concomitant]
     Route: 048
  7. OMEPRAZOLE [Concomitant]
     Route: 048
  8. NOOTROPIL [Concomitant]
     Route: 048
  9. METOCLOPRAMIDE [Concomitant]
     Route: 065
  10. LOPERAMIDE HCL [Concomitant]
     Route: 041
  11. SODIUM CHLORIDE [Concomitant]
     Route: 065
  12. MINERAL SUPPLEMENTS [Concomitant]
     Route: 065
  13. MAGNESIUM GLUCONATE [Concomitant]
     Route: 065

REACTIONS (3)
  - ANOREXIA [None]
  - DEHYDRATION [None]
  - FATIGUE [None]
